FAERS Safety Report 4706496-X (Version None)
Quarter: 2005Q3

REPORT INFORMATION
  Report Type: 
  Country: None (occurrence: None)
  Receive Date: 20050705
  Receipt Date: 20050624
  Transmission Date: 20060218
  Serious: Yes (Hospitalization)
  Sender: FDA-Public Use
  Company Number: FR-GLAXOSMITHKLINE-B0386406A

PATIENT
  Age: 47 Year
  Sex: Male

DRUGS (6)
  1. AUGMENTIN '125' [Suspect]
     Dosage: 3UNIT PER DAY
     Route: 048
     Dates: start: 20050520, end: 20050524
  2. AUGMENTIN '125' [Suspect]
     Route: 042
     Dates: start: 20050516, end: 20050520
  3. NEXIUM [Suspect]
     Dosage: 1UNIT PER DAY
     Route: 048
     Dates: start: 20050518, end: 20050524
  4. SOLUPRED 20 MG [Suspect]
     Route: 048
     Dates: start: 20050520, end: 20050524
  5. CIFLOX 500 [Concomitant]
     Dosage: 1UNIT PER DAY
     Route: 048
     Dates: start: 20050519
  6. CIFLOX [Concomitant]
     Route: 042
     Dates: start: 20050516, end: 20050519

REACTIONS (3)
  - ARTHRALGIA [None]
  - PURPURA [None]
  - TOXIC SKIN ERUPTION [None]
